FAERS Safety Report 12536677 (Version 1)
Quarter: 2016Q3

REPORT INFORMATION
  Report Type: Spontaneous
  Country: US (occurrence: US)
  Receive Date: 20160707
  Receipt Date: 20160707
  Transmission Date: 20161109
  Serious: Yes (Other)
  Sender: FDA-Public Use
  Company Number: US-AMGEN-USASP2016063216

PATIENT
  Age: 63 Year
  Sex: Female
  Weight: 66.67 kg

DRUGS (2)
  1. PROLIA [Suspect]
     Active Substance: DENOSUMAB
     Indication: OSTEOPOROSIS POSTMENOPAUSAL
     Dosage: 60 MG, Q6MO
     Route: 065
     Dates: start: 201510
  2. LOSARTAN. [Concomitant]
     Active Substance: LOSARTAN
     Indication: HYPERTENSION
     Dosage: 100 MG, QD
     Dates: start: 201401

REACTIONS (9)
  - Gingival pain [Recovering/Resolving]
  - Constipation [Not Recovered/Not Resolved]
  - Headache [Not Recovered/Not Resolved]
  - Toothache [Unknown]
  - Tooth disorder [Unknown]
  - Pain in jaw [Not Recovered/Not Resolved]
  - Dysuria [Not Recovered/Not Resolved]
  - Muscle tightness [Unknown]
  - Gingival pruritus [Unknown]

NARRATIVE: CASE EVENT DATE: 2016
